FAERS Safety Report 10154461 (Version 1)
Quarter: 2014Q2

REPORT INFORMATION
  Report Type: Spontaneous
  Country: US (occurrence: None)
  Receive Date: 20140505
  Receipt Date: 20140505
  Transmission Date: 20141212
  Serious: Yes (Life-Threatening, Disabling, Other)
  Sender: FDA-Public Use
  Company Number: None

PATIENT
  Age: 35 Year
  Sex: Female
  Weight: 72.58 kg

DRUGS (12)
  1. ABILIFY [Suspect]
     Indication: DEPRESSION
     Route: 048
  2. PROZAC [Concomitant]
  3. ATIVAN [Concomitant]
  4. ADDERALL [Concomitant]
  5. LAMICTAL [Concomitant]
  6. AMITIZA [Concomitant]
  7. LYBREL (BIRTH CONTROL) [Concomitant]
  8. SOLODYN ER [Concomitant]
  9. ADVIL [Concomitant]
  10. PEPCID [Concomitant]
  11. FLORASTOR [Concomitant]
  12. PRELIEF [Concomitant]

REACTIONS (51)
  - Sedation [None]
  - Fatigue [None]
  - Lethargy [None]
  - Disturbance in attention [None]
  - Weight increased [None]
  - Feeling abnormal [None]
  - Mood altered [None]
  - Crying [None]
  - Middle insomnia [None]
  - Depressed mood [None]
  - Depression [None]
  - Suicidal ideation [None]
  - Impaired work ability [None]
  - Somnolence [None]
  - Memory impairment [None]
  - Frustration [None]
  - Dermatitis [None]
  - Erythema [None]
  - Pruritus [None]
  - Scratch [None]
  - Skin ulcer [None]
  - Skin disorder [None]
  - Skin lesion [None]
  - Nail disorder [None]
  - Dyspnoea [None]
  - Nail ridging [None]
  - Myalgia [None]
  - Disorientation [None]
  - Balance disorder [None]
  - Anxiety [None]
  - Somnolence [None]
  - Cognitive disorder [None]
  - Panic attack [None]
  - Tremor [None]
  - Anxiety [None]
  - Restlessness [None]
  - Heart rate increased [None]
  - Agoraphobia [None]
  - Reading disorder [None]
  - Scar [None]
  - Urticaria [None]
  - Hyperaesthesia [None]
  - Hypoaesthesia [None]
  - Paraesthesia [None]
  - Abdominal pain upper [None]
  - Pelvic pain [None]
  - Pain [None]
  - Micturition urgency [None]
  - Bladder disorder [None]
  - Condition aggravated [None]
  - Withdrawal syndrome [None]
